FAERS Safety Report 7923481-5 (Version None)
Quarter: 2011Q4

REPORT INFORMATION
  Report Type: 
  Country: None (occurrence: None)
  Receive Date: 20111117
  Receipt Date: 20110203
  Transmission Date: 20120403
  Serious: No
  Sender: FDA-Public Use
  Company Number: US-AMGEN-USASP2011006609

PATIENT
  Age: 68 Year
  Sex: Female
  Weight: 90 kg

DRUGS (9)
  1. EVISTA                             /01303201/ [Concomitant]
     Dosage: 60 MG, UNK
  2. NEXIUM [Concomitant]
     Dosage: 20 MG, UNK
  3. ACTOS [Concomitant]
     Dosage: 15 MG, UNK
  4. SYNTHROID [Concomitant]
     Dosage: 25 A?G, UNK
  5. LIPITOR ORIFARM [Concomitant]
     Dosage: 10 MG, UNK
  6. ENBREL [Suspect]
     Indication: PRODUCT USED FOR UNKNOWN INDICATION
     Dosage: 50 MG, QWK
  7. DIOVAN [Concomitant]
     Dosage: 160 MG, UNK
  8. VERAPAMIL [Concomitant]
     Dosage: 100 MG, UNK
  9. METFORMIN HCL [Concomitant]
     Dosage: 850 MG, UNK

REACTIONS (3)
  - INJECTION SITE PAIN [None]
  - HEADACHE [None]
  - ENDODONTIC PROCEDURE [None]
